FAERS Safety Report 10075405 (Version 1)
Quarter: 2014Q2

REPORT INFORMATION
  Report Type: Spontaneous
  Country: US (occurrence: None)
  Receive Date: 20140411
  Receipt Date: 20140411
  Transmission Date: 20141212
  Serious: Yes (Other)
  Sender: FDA-Public Use
  Company Number: None

PATIENT
  Age: 49 Year
  Sex: Female

DRUGS (1)
  1. ESCITALOPRAM [Suspect]
     Route: 048

REACTIONS (2)
  - Drug withdrawal syndrome [None]
  - Hyperhidrosis [None]
